FAERS Safety Report 6737328-6 (Version None)
Quarter: 2010Q2

REPORT INFORMATION
  Report Type: 
  Country: None (occurrence: None)
  Receive Date: 20100524
  Receipt Date: 20100517
  Transmission Date: 20101027
  Serious: Yes (Life-Threatening, Hospitalization, Other)
  Sender: FDA-Public Use
  Company Number: FR-CELGENEUS-056-20785-10040871

PATIENT
  Sex: Female
  Weight: 43 kg

DRUGS (11)
  1. THALIDOMIDE [Suspect]
     Route: 048
     Dates: start: 19990101, end: 20100311
  2. THALIDOMIDE [Suspect]
     Route: 048
     Dates: start: 20060201
  3. THALIDOMIDE [Suspect]
     Route: 048
     Dates: start: 20050518
  4. THALIDOMIDE [Suspect]
     Route: 048
     Dates: end: 20100311
  5. COLCHICINE [Concomitant]
     Route: 048
     Dates: start: 20010101
  6. OXYCONTIN [Concomitant]
     Indication: DRUG USE FOR UNKNOWN INDICATION
     Route: 065
  7. AMITRIPTYLINE HCL [Concomitant]
     Indication: DRUG USE FOR UNKNOWN INDICATION
     Route: 065
  8. OFLOCET [Concomitant]
     Route: 065
  9. SPASFON LYOC [Concomitant]
     Indication: DRUG USE FOR UNKNOWN INDICATION
     Route: 065
  10. NEXIUM [Concomitant]
     Indication: DRUG USE FOR UNKNOWN INDICATION
     Route: 065
  11. TRIFLUCAN [Concomitant]
     Indication: DRUG USE FOR UNKNOWN INDICATION
     Route: 065

REACTIONS (2)
  - BEHCET'S SYNDROME [None]
  - NEUROPATHY PERIPHERAL [None]
